FAERS Safety Report 5808573-9 (Version None)
Quarter: 2008Q3

REPORT INFORMATION
  Report Type: 
  Country: None (occurrence: None)
  Receive Date: 20080714
  Receipt Date: 20080709
  Transmission Date: 20090109
  Serious: Yes (Hospitalization)
  Sender: FDA-Public Use
  Company Number: GB-ASTRAZENECA-2008GB01306

PATIENT
  Sex: Male

DRUGS (1)
  1. SEROQUEL [Suspect]
     Indication: AGITATION
     Route: 048
     Dates: start: 20080101

REACTIONS (3)
  - ATRIAL HYPERTROPHY [None]
  - ELECTROCARDIOGRAM QT PROLONGED [None]
  - VENTRICULAR HYPERTROPHY [None]
